FAERS Safety Report 9708864 (Version 1)
Quarter: 2013Q4

REPORT INFORMATION
  Report Type: Spontaneous
  Country: US (occurrence: US)
  Receive Date: 20131125
  Receipt Date: 20131125
  Transmission Date: 20140711
  Serious: No
  Sender: FDA-Public Use
  Company Number: US-TEVA-446008USA

PATIENT
  Sex: Male

DRUGS (2)
  1. AZILECT [Suspect]
     Indication: PARKINSON^S DISEASE
     Dates: start: 2012
  2. REXUIB [Suspect]

REACTIONS (1)
  - Cough [Not Recovered/Not Resolved]
